FAERS Safety Report 8909032 (Version 45)
Quarter: 2018Q4

REPORT INFORMATION
  Report Type: Report from Study
  Country: CA (occurrence: CA)
  Receive Date: 20121114
  Receipt Date: 20181213
  Transmission Date: 20190205
  Serious: Yes (Hospitalization, Other)
  Sender: FDA-Public Use
  Company Number: PHHY2012CA104724

PATIENT
  Age: 62 Year
  Sex: Female

DRUGS (10)
  1. SANDOSTATIN LAR DEPOT [Suspect]
     Active Substance: OCTREOTIDE ACETATE
     Dosage: 30 MG, QMO
     Route: 030
     Dates: start: 20171012
  2. WATER PILLS [Concomitant]
     Active Substance: UNSPECIFIED INGREDIENT
     Indication: PRODUCT USED FOR UNKNOWN INDICATION
     Route: 065
  3. SANDOSTATIN LAR DEPOT [Suspect]
     Active Substance: OCTREOTIDE ACETATE
     Dosage: 30 MG, QMO
     Route: 030
     Dates: start: 20171208
  4. ULTIBRO [Suspect]
     Active Substance: GLYCOPYRRONIUM\INDACATEROL
     Indication: PRODUCT USED FOR UNKNOWN INDICATION
     Dosage: 1 PUFF, DAILY
     Route: 065
     Dates: start: 20180619
  5. SANDOSTATIN [Suspect]
     Active Substance: OCTREOTIDE ACETATE
     Indication: ACROMEGALY
     Dosage: 1 DF, ONCE/SINGLE (TEST DOSE)
     Route: 058
     Dates: start: 20120920, end: 20120920
  6. SANDOSTATIN LAR DEPOT [Suspect]
     Active Substance: OCTREOTIDE ACETATE
     Indication: ACROMEGALY
     Dosage: 20 MG, QMO (EVERY 4 WEEKS)
     Route: 030
     Dates: start: 20121017, end: 20140522
  7. HYDROCHLOROTHIAZIDE. [Concomitant]
     Active Substance: HYDROCHLOROTHIAZIDE
     Indication: PRODUCT USED FOR UNKNOWN INDICATION
     Route: 065
  8. SANDOSTATIN LAR DEPOT [Suspect]
     Active Substance: OCTREOTIDE ACETATE
     Dosage: 30 MG, QMO (EVERY 4 WEEKS)
     Route: 030
     Dates: start: 20140619
  9. ADVAIR DISKUS [Concomitant]
     Active Substance: FLUTICASONE PROPIONATE\SALMETEROL XINAFOATE
     Indication: PRODUCT USED FOR UNKNOWN INDICATION
     Dosage: 250/50 MCG, BID
     Route: 050
  10. SPIRIVA [Concomitant]
     Active Substance: TIOTROPIUM BROMIDE MONOHYDRATE
     Indication: PRODUCT USED FOR UNKNOWN INDICATION
     Dosage: ONE PUFF/ DAY
     Route: 065

REACTIONS (39)
  - Depression [Unknown]
  - Dyspnoea [Recovering/Resolving]
  - Dizziness [Recovering/Resolving]
  - Asthenia [Unknown]
  - Body temperature decreased [Unknown]
  - Gait disturbance [Unknown]
  - Stress [Unknown]
  - Upper limb fracture [Unknown]
  - Diabetes mellitus [Unknown]
  - Head injury [Unknown]
  - Contusion [Unknown]
  - Apathy [Unknown]
  - Back pain [Unknown]
  - Heart rate increased [Unknown]
  - Face injury [Unknown]
  - Scoliosis [Unknown]
  - Blood pressure increased [Unknown]
  - Mental disorder [Unknown]
  - Lung disorder [Unknown]
  - Fall [Unknown]
  - Respiratory failure [Unknown]
  - Discomfort [Unknown]
  - Acute psychosis [Recovered/Resolved]
  - Weight decreased [Unknown]
  - Respiratory rate increased [Unknown]
  - Blood pressure systolic increased [Unknown]
  - Decreased appetite [Unknown]
  - Respiratory distress [Unknown]
  - Chronic obstructive pulmonary disease [Recovered/Resolved]
  - Blood pressure decreased [Recovering/Resolving]
  - Balance disorder [Unknown]
  - Pain [Unknown]
  - Blood pressure systolic decreased [Unknown]
  - Laziness [Unknown]
  - Large intestine polyp [Unknown]
  - Tachycardia [Unknown]
  - Fatigue [Not Recovered/Not Resolved]
  - Nasopharyngitis [Unknown]
  - Nausea [Unknown]

NARRATIVE: CASE EVENT DATE: 201211
